FAERS Safety Report 6659353-6 (Version None)
Quarter: 2010Q1

REPORT INFORMATION
  Report Type: 
  Country: None (occurrence: None)
  Receive Date: 20100330
  Receipt Date: 20100319
  Transmission Date: 20100710
  Serious: No
  Sender: FDA-Public Use
  Company Number: US-BIOGENIDEC-2010BI009751

PATIENT
  Age: 53 Year
  Sex: Female

DRUGS (2)
  1. TYSABRI [Suspect]
     Indication: CROHN'S DISEASE
     Route: 042
     Dates: start: 20080714, end: 20080714
  2. TYSABRI [Suspect]
     Route: 042
     Dates: start: 20090717

REACTIONS (4)
  - DISBACTERIOSIS [None]
  - FOOD POISONING [None]
  - IMMUNE SYSTEM DISORDER [None]
  - NIGHT SWEATS [None]
